FAERS Safety Report 8494265-7 (Version None)
Quarter: 2012Q3

REPORT INFORMATION
  Report Type: 
  Country: None (occurrence: None)
  Receive Date: 20120709
  Receipt Date: 20120705
  Transmission Date: 20120928
  Serious: Yes (Other)
  Sender: FDA-Public Use
  Company Number: PHHY2012MX058094

PATIENT
  Sex: Female

DRUGS (2)
  1. AKATINOL [Concomitant]
     Dates: start: 20060701, end: 20120301
  2. STALEVO 100 [Suspect]
     Indication: PARKINSON'S DISEASE
     Dosage: 200/50/12.5, 2 DF PER DAY
     Route: 048
     Dates: start: 20110901, end: 20120601

REACTIONS (1)
  - DECREASED APPETITE [None]
